FAERS Safety Report 9196027 (Version 1)
Quarter: 2013Q1

REPORT INFORMATION
  Report Type: Report from Study
  Country: CA (occurrence: CA)
  Receive Date: 20130328
  Receipt Date: 20130328
  Transmission Date: 20140127
  Serious: Yes (Other)
  Sender: FDA-Public Use
  Company Number: CA-JNJFOC-20130312051

PATIENT
  Age: 24 Year
  Sex: Male
  Weight: 78.6 kg

DRUGS (5)
  1. REMICADE [Suspect]
     Indication: CROHN^S DISEASE
     Dosage: 60TH INFUSION
     Route: 042
     Dates: start: 20130318
  2. REMICADE [Suspect]
     Indication: CROHN^S DISEASE
     Route: 042
     Dates: start: 2003
  3. ATIVAN [Suspect]
     Indication: PRODUCT USED FOR UNKNOWN INDICATION
     Route: 065
  4. VITAMIN D [Concomitant]
     Route: 065
  5. MULTIVITAMINS [Concomitant]
     Route: 065

REACTIONS (10)
  - Infusion related reaction [Recovered/Resolved]
  - Hyperventilation [Recovered/Resolved]
  - Chest discomfort [Recovered/Resolved]
  - Bronchitis [Recovered/Resolved]
  - Pallor [Recovered/Resolved]
  - Anxiety [Recovered/Resolved]
  - Tremor [Recovered/Resolved]
  - Feeling abnormal [Recovered/Resolved]
  - Urinary tract infection [Unknown]
  - Malaise [Recovered/Resolved]
